FAERS Safety Report 9393035 (Version 1)
Quarter: 2013Q3

REPORT INFORMATION
  Report Type: Spontaneous
  Country: FR (occurrence: FR)
  Receive Date: 20130710
  Receipt Date: 20130710
  Transmission Date: 20140515
  Serious: Yes (Other)
  Sender: FDA-Public Use
  Company Number: FR-PFIZER INC-2013201755

PATIENT
  Age: 97 Year
  Sex: Female

DRUGS (7)
  1. CORDARONE [Suspect]
     Dosage: 200 MG, UNK
     Route: 048
     Dates: start: 20130328, end: 20130406
  2. CALCIPARINE [Interacting]
     Dosage: 0.5 DF, 3X/DAY
     Route: 058
     Dates: start: 20130329, end: 20130401
  3. COUMADINE [Interacting]
     Dosage: 1 DF, DAILY AT EVENINGS
     Route: 048
     Dates: start: 20130327, end: 20130402
  4. RAMIPRIL [Concomitant]
     Dosage: UNK
  5. HEMIGOXINE [Concomitant]
     Dosage: UNK
  6. AMLODIPINE [Concomitant]
     Dosage: UNK
  7. LASILIX [Concomitant]
     Dosage: UNK

REACTIONS (2)
  - Drug interaction [Recovering/Resolving]
  - Muscle haemorrhage [Recovering/Resolving]
